FAERS Safety Report 8654712 (Version 2)
Quarter: 2012Q4

REPORT INFORMATION
  Report Type: 
  Country: US (occurrence: US)
  Receive Date: 20120709
  Receipt Date: 20121026
  Transmission Date: 20130627
  Serious: Yes (Hospitalization, Other)
  Sender: FDA-Public Use
  Company Number: US-PFIZER INC-2012161320

PATIENT
  Age: 26 Year
  Sex: Male

DRUGS (8)
  1. CHANTIX [Suspect]
     Indication: SMOKING CESSATION THERAPY
     Dosage: normal starting dose
     Dates: start: 20080513
  2. DARVOCET [Concomitant]
     Indication: NECK PAIN
     Dosage: UNK
     Dates: start: 20000118, end: 2010
  3. LORTAB [Concomitant]
     Indication: NECK PAIN
     Dosage: UNK
     Dates: start: 2000
  4. ATENOLOL [Concomitant]
     Indication: TREMOR
     Dosage: UNK
     Dates: start: 2000
  5. XANAX [Concomitant]
     Indication: ANXIETY
     Dosage: UNK
     Dates: start: 2003
  6. LASIX [Concomitant]
     Indication: OEDEMA
     Dosage: UNK
     Dates: start: 2005
  7. TORADOL [Concomitant]
     Indication: NECK PAIN
     Dosage: UNK
     Dates: start: 2005, end: 2010
  8. WELLBUTRIN [Concomitant]
     Indication: DEPRESSION
     Dosage: UNK
     Dates: start: 2006

REACTIONS (7)
  - Suicide attempt [Unknown]
  - Suicidal ideation [Not Recovered/Not Resolved]
  - Depression [Not Recovered/Not Resolved]
  - Bipolar I disorder [Unknown]
  - Anxiety [Not Recovered/Not Resolved]
  - Irritability [Not Recovered/Not Resolved]
  - Nightmare [Unknown]
